FAERS Safety Report 6713121-5 (Version None)
Quarter: 2010Q2

REPORT INFORMATION
  Report Type: 
  Country: None (occurrence: None)
  Receive Date: 20100506
  Receipt Date: 20100428
  Transmission Date: 20101027
  Serious: Yes (Other)
  Sender: FDA-Public Use
  Company Number: BR-ASTRAZENECA-2010SE19364

PATIENT
  Sex: Female

DRUGS (5)
  1. SEROQUEL [Suspect]
     Indication: DEPRESSION
     Route: 048
     Dates: start: 20090701, end: 20090701
  2. SEROQUEL [Suspect]
     Route: 048
     Dates: start: 20100301, end: 20100401
  3. SEROQUEL [Suspect]
     Route: 048
     Dates: start: 20100411
  4. DORMONID [Concomitant]
     Indication: DEPRESSION
     Route: 048
     Dates: start: 20091101
  5. ROHYPNOL [Concomitant]
     Indication: DEPRESSION
     Route: 048
     Dates: start: 20091101

REACTIONS (9)
  - APPENDICITIS [None]
  - COUGH [None]
  - HALLUCINATION [None]
  - HYPOTENSION [None]
  - NAUSEA [None]
  - PERIPHERAL COLDNESS [None]
  - PYREXIA [None]
  - SLEEP DISORDER [None]
  - SYNCOPE [None]
